FAERS Safety Report 6101669-6 (Version None)
Quarter: 2009Q1

REPORT INFORMATION
  Report Type: 
  Country: None (occurrence: None)
  Receive Date: 20090304
  Receipt Date: 20090225
  Transmission Date: 20090719
  Serious: Yes (Hospitalization, Other)
  Sender: FDA-Public Use
  Company Number: FR-JNJFOC-20090206000

PATIENT
  Age: 62 Year
  Sex: Female

DRUGS (3)
  1. RISPERDAL CONSTA [Suspect]
     Indication: PARANOIA
     Route: 030
  2. RISPERDAL [Suspect]
     Indication: PARANOIA
     Route: 048
  3. LOXAPAC [Concomitant]
     Indication: PARANOIA
     Route: 065

REACTIONS (5)
  - BLOOD CREATINE PHOSPHOKINASE INCREASED [None]
  - BRACHIAL PLEXUS INJURY [None]
  - FALL [None]
  - PARKINSONISM [None]
  - RHABDOMYOLYSIS [None]
